FAERS Safety Report 10560231 (Version 1)
Quarter: 2014Q4

REPORT INFORMATION
  Report Type: Report from Study
  Country: BR (occurrence: BR)
  Receive Date: 20141103
  Receipt Date: 20141103
  Transmission Date: 20150529
  Serious: Yes (Hospitalization)
  Sender: FDA-Public Use
  Company Number: BR-SA-2014SA150688

PATIENT
  Age: 59 Year
  Sex: Female
  Weight: 60 kg

DRUGS (8)
  1. LANTUS [Suspect]
     Active Substance: INSULIN GLARGINE
     Indication: TYPE 1 DIABETES MELLITUS
     Dosage: MORNING
     Route: 065
  2. CLIKSTAR [Concomitant]
     Active Substance: CLIKSTAR
     Indication: DEVICE THERAPY
     Dosage: BLUE APPLICATOR PEN
  3. METFORMIN [Concomitant]
     Active Substance: METFORMIN HYDROCHLORIDE
     Indication: TYPE 1 DIABETES MELLITUS
  4. CALCIUM/COLECALCIFEROL [Concomitant]
     Active Substance: CALCIUM\CHOLECALCIFEROL
     Indication: OSTEOPOROSIS
  5. DIOSMIN/HESPERIDIN [Concomitant]
     Indication: CARDIOVASCULAR DISORDER
     Dosage: START DATE: 1 YEAR AGO,?1SACHET  DAILY
  6. LOTAR [Concomitant]
     Active Substance: AMLODIPINE\LOSARTAN
     Indication: HYPERTENSION
     Dosage: ONE YEAR AGO
  7. ALL OTHER THERAPEUTIC PRODUCTS [Concomitant]
     Active Substance: UNSPECIFIED INGREDIENT
     Indication: OSTEOPOROSIS
     Dosage: ONE YEAR AGO
  8. SIMVASTATIN. [Concomitant]
     Active Substance: SIMVASTATIN
     Indication: BLOOD CHOLESTEROL
     Dosage: CHOLESTEROL

REACTIONS (1)
  - Lung infection [Recovered/Resolved]

NARRATIVE: CASE EVENT DATE: 20140923
